FAERS Safety Report 7593496-8 (Version None)
Quarter: 2011Q3

REPORT INFORMATION
  Report Type: 
  Country: None (occurrence: None)
  Receive Date: 20110706
  Receipt Date: 20110701
  Transmission Date: 20111222
  Serious: Yes (Hospitalization)
  Sender: FDA-Public Use
  Company Number: RU-BRISTOL-MYERS SQUIBB COMPANY-15548027

PATIENT
  Age: 64 Year
  Sex: Female
  Weight: 106 kg

DRUGS (11)
  1. DEXAMETHASONE SODIUM PHOSPHATE [Suspect]
     Indication: URTICARIA
     Dosage: 09FEB TO 24FEB2011;17MAR TO 22MAR2011;12-20MAR(12MG)MAR(8MG)22MAR(4MG)
     Route: 042
     Dates: start: 20110209, end: 20110322
  2. METFORMIN HCL [Suspect]
     Indication: TYPE 2 DIABETES MELLITUS
  3. PLACEBO [Suspect]
     Indication: TYPE 2 DIABETES MELLITUS
     Dosage: INTERRUPTED
     Dates: start: 20110128
  4. CELEBREX [Suspect]
  5. ASPIRIN [Concomitant]
     Dosage: 1 DF ={ 100MG
     Dates: start: 20110125
  6. MEBHYDROLIN [Concomitant]
     Indication: URTICARIA
     Route: 048
     Dates: start: 20110317, end: 20110329
  7. BERODUAL [Concomitant]
     Dosage: 1 DF = 6UNITS
     Dates: start: 20110209, end: 20110225
  8. BLINDED: SAXAGLIPTIN [Suspect]
     Indication: TYPE 2 DIABETES MELLITUS
     Dosage: INTERRUPTED ON 17MAR2011, RESTARTED ON 19APR11
     Dates: start: 20110128
  9. LASOLVAN [Concomitant]
     Dosage: 1 DF = 6 UNITS
     Dates: start: 20110209, end: 20110221
  10. THIOCTACID [Suspect]
     Indication: OSTEOCHONDROSIS
     Route: 048
     Dates: start: 20110304, end: 20110316
  11. DIMEDROLUM [Concomitant]
     Indication: URTICARIA
     Route: 030
     Dates: start: 20110317, end: 20110321

REACTIONS (4)
  - URTICARIA [None]
  - ASTHMA [None]
  - FACE OEDEMA [None]
  - PANCREATITIS CHRONIC [None]
